FAERS Safety Report 7866072-7 (Version None)
Quarter: 2011Q4

REPORT INFORMATION
  Report Type: 
  Country: None (occurrence: None)
  Receive Date: 20111028
  Receipt Date: 20110419
  Transmission Date: 20120403
  Serious: No
  Sender: FDA-Public Use
  Company Number: US-GLAXOSMITHKLINE-A0923582A

PATIENT
  Age: 80 Year
  Sex: Female

DRUGS (13)
  1. CARTIA XT [Concomitant]
  2. ADVAIR DISKUS 100/50 [Suspect]
     Indication: ASTHMA
     Dosage: 1PUFF TWICE PER DAY
     Route: 055
  3. NABUMETONE [Concomitant]
  4. FIBER [Concomitant]
     Route: 048
  5. MULTIPLE VITAMIN [Concomitant]
  6. FLUTICASONE PROPIONATE [Concomitant]
  7. GLUCOSAMINE SULFATE [Concomitant]
  8. OMEPRAZOLE [Concomitant]
  9. VITAMIN-MINERAL COMPOUND TAB [Concomitant]
  10. STOOL SOFTENER [Concomitant]
  11. CALCIUM CARBONATE [Concomitant]
  12. MIRALAX [Concomitant]
  13. TRAMADOL HCL [Concomitant]

REACTIONS (1)
  - COUGH [None]
